FAERS Safety Report 19744072 (Version 2)
Quarter: 2021Q3

REPORT INFORMATION
  Report Type: Report from Study
  Country: None (occurrence: US)
  Receive Date: 20210824
  Receipt Date: 20210927
  Transmission Date: 20211014
  Serious: Yes (Other)
  Sender: FDA-Public Use
  Company Number: US-ABBVIE-21K-163-4043922-00

PATIENT
  Sex: Female
  Weight: 46.31 kg

DRUGS (3)
  1. HUMIRA [Suspect]
     Active Substance: ADALIMUMAB
     Dosage: DAY 15
     Route: 058
     Dates: start: 20210826, end: 20210826
  2. HUMIRA [Suspect]
     Active Substance: ADALIMUMAB
     Indication: CROHN^S DISEASE
     Dosage: DAY 29
     Route: 058
     Dates: start: 20210909
  3. HUMIRA [Suspect]
     Active Substance: ADALIMUMAB
     Indication: CROHN^S DISEASE
     Dosage: DAY 1
     Route: 058
     Dates: start: 20210812, end: 20210812

REACTIONS (16)
  - Weight decreased [Not Recovered/Not Resolved]
  - Loss of personal independence in daily activities [Unknown]
  - Skin erosion [Unknown]
  - Rehabilitation therapy [Unknown]
  - Fatigue [Unknown]
  - Gastrointestinal sounds abnormal [Unknown]
  - Diarrhoea [Recovering/Resolving]
  - Unevaluable event [Unknown]
  - Abdominal distension [Recovering/Resolving]
  - Flatulence [Not Recovered/Not Resolved]
  - Constipation [Unknown]
  - Dyschezia [Unknown]
  - Frequent bowel movements [Unknown]
  - Wound haemorrhage [Unknown]
  - Drug ineffective [Not Recovered/Not Resolved]
  - Abdominal pain [Recovering/Resolving]

NARRATIVE: CASE EVENT DATE: 2021
